FAERS Safety Report 10776918 (Version 1)
Quarter: 2015Q1

REPORT INFORMATION
  Report Type: Report from Study
  Country: US (occurrence: US)
  Receive Date: 20150209
  Receipt Date: 20150209
  Transmission Date: 20150721
  Serious: Yes (Hospitalization, Other)
  Sender: FDA-Public Use
  Company Number: PHEH2015US002201

PATIENT
  Sex: Male

DRUGS (1)
  1. GLEEVEC [Suspect]
     Active Substance: IMATINIB MESYLATE
     Indication: CHRONIC MYELOID LEUKAEMIA
     Dosage: 400 MG, QD
     Route: 048
     Dates: start: 201405

REACTIONS (10)
  - Atrial fibrillation [Unknown]
  - Muscle injury [Unknown]
  - Contusion [Unknown]
  - Myalgia [Unknown]
  - Pericarditis [Unknown]
  - White blood cell count increased [Unknown]
  - Pallor [Unknown]
  - Pain in extremity [Unknown]
  - Rash [Recovered/Resolved]
  - Haemoglobin decreased [Unknown]
